FAERS Safety Report 4822402-1 (Version None)
Quarter: 2005Q4

REPORT INFORMATION
  Report Type: 
  Country: None (occurrence: None)
  Receive Date: 20051104
  Receipt Date: 20051104
  Transmission Date: 20060501
  Serious: Yes (Life-Threatening)
  Sender: FDA-Public Use
  Company Number: None

PATIENT
  Age: 21 Year
  Sex: Female
  Weight: 61.2356 kg

DRUGS (1)
  1. ORTHO EVRA [Suspect]
     Dosage: 1 TRANSDERMAL PATCH   CHANGE 1/WEEK  TRANSDERMAL
     Route: 062
     Dates: start: 20040512, end: 20051029

REACTIONS (5)
  - MIGRAINE [None]
  - NAUSEA [None]
  - PHOTOSENSITIVITY REACTION [None]
  - VISION BLURRED [None]
  - VOMITING [None]
